FAERS Safety Report 13576774 (Version 3)
Quarter: 2017Q3

REPORT INFORMATION
  Report Type: Spontaneous
  Country: FR (occurrence: FR)
  Receive Date: 20170524
  Receipt Date: 20170731
  Transmission Date: 20171127
  Serious: Yes (Life-Threatening)
  Sender: FDA-Public Use
  Company Number: FR-TEVA-769636ROM

PATIENT
  Age: 28 Day
  Sex: Female
  Weight: 3.06 kg

DRUGS (2)
  1. NIFEDIPINE RATIOPHARM LP 20 MG/ML [Suspect]
     Active Substance: NIFEDIPINE
     Indication: RENAL HYPERTENSION
     Dosage: 6 MILLIGRAM DAILY;
     Route: 048
     Dates: start: 20170323, end: 20170323
  2. NICARDIPINE AGUETTANT 10 MG/10ML [Suspect]
     Active Substance: NICARDIPINE HYDROCHLORIDE
     Indication: RENAL HYPERTENSION
     Dosage: 13 MILLIGRAM DAILY;
     Route: 042
     Dates: start: 20170318, end: 20170323

REACTIONS (1)
  - Cardiogenic shock [Recovered/Resolved]

NARRATIVE: CASE EVENT DATE: 20170323
